FAERS Safety Report 16838416 (Version 1)
Quarter: 2019Q3

REPORT INFORMATION
  Report Type: Spontaneous
  Country: US (occurrence: US)
  Receive Date: 20190731
  Receipt Date: 20190731
  Transmission Date: 20191005
  Serious: No
  Sender: FDA-Public Use
  Company Number: None

PATIENT

DRUGS (2)
  1. AMLODIPINE AND VALSARTAN [Suspect]
     Active Substance: AMLODIPINE\VALSARTAN
  2. AMLODIPINE\LOSARTAN [Suspect]
     Active Substance: AMLODIPINE\LOSARTAN

REACTIONS (1)
  - Failure to suspend medication [None]
